FAERS Safety Report 15327490 (Version 1)
Quarter: 2018Q4

REPORT INFORMATION
  Report Type: Report from Study
  Country: GB (occurrence: GB)
  Receive Date: 20180828
  Receipt Date: 20180828
  Transmission Date: 20190204
  Serious: Yes (Hospitalization)
  Sender: FDA-Public Use
  Company Number: GB-AGIOS-1808GB00205

PATIENT
  Age: 61 Year
  Sex: Female
  Weight: 49 kg

DRUGS (11)
  1. METOCLOPRAMIDE. [Concomitant]
     Active Substance: METOCLOPRAMIDE
     Indication: NAUSEA
     Dosage: 10-20 MG, PRN
     Route: 048
     Dates: start: 20180619
  2. LOPERAMIDE [Concomitant]
     Active Substance: LOPERAMIDE
     Indication: HYPERCALCAEMIA
     Dosage: 4 MILLIGRAM, PRN
     Route: 048
     Dates: start: 20180619
  3. BLINDED PLACEBO [Suspect]
     Active Substance: INVESTIGATIONAL PRODUCT
     Indication: CHOLANGIOCARCINOMA
     Dosage: 500 MILLIGRAM, QD
     Route: 048
     Dates: start: 20180619
  4. PARACETAMOL [Concomitant]
     Active Substance: ACETAMINOPHEN
     Indication: ABDOMINAL DISCOMFORT
     Dosage: 500 MILLIGRAM, PRN
     Route: 048
  5. BLINDED IVOSIDENIB SOLID TUMOUR [Suspect]
     Active Substance: IVOSIDENIB
     Indication: CHOLANGIOCARCINOMA
     Dosage: 500 MILLIGRAM, QD
     Route: 048
     Dates: start: 20180619
  6. RANITIDINE. [Concomitant]
     Active Substance: RANITIDINE
     Indication: PROPHYLAXIS
     Dosage: 150 MILLIGRAM, PRN
     Route: 048
     Dates: start: 201710
  7. LOPERAMIDE [Concomitant]
     Active Substance: LOPERAMIDE
     Indication: DIARRHOEA
     Dosage: 2 TABLET, PRN
     Route: 048
     Dates: start: 201710
  8. OMEPRAZOLE. [Concomitant]
     Active Substance: OMEPRAZOLE
     Indication: PROPHYLAXIS
     Dosage: 40 MILLIGRAM, SINGLE
     Route: 048
     Dates: start: 201710
  9. DALTEPARIN [Concomitant]
     Active Substance: DALTEPARIN
     Indication: PROPHYLAXIS
     Dosage: 7500 INTERNATIONAL UNIT
     Dates: start: 201710
  10. METOCLOPRAMIDE. [Concomitant]
     Active Substance: METOCLOPRAMIDE
     Indication: HYPERCALCAEMIA
  11. DOMPERIDONE [Concomitant]
     Active Substance: DOMPERIDONE
     Indication: NAUSEA
     Dosage: 2 TABLET, PRN
     Route: 048
     Dates: start: 201710

REACTIONS (2)
  - Hypokalaemia [Recovered/Resolved]
  - Hypercalcaemia [Recovered/Resolved with Sequelae]

NARRATIVE: CASE EVENT DATE: 20180801
